FAERS Safety Report 19478779 (Version 1)
Quarter: 2021Q2

REPORT INFORMATION
  Report Type: Spontaneous
  Country: BE (occurrence: BE)
  Receive Date: 20210630
  Receipt Date: 20210630
  Transmission Date: 20210717
  Serious: Yes (Other)
  Sender: FDA-Public Use
  Company Number: BE-SEATTLE GENETICS-2018SGN03082

PATIENT

DRUGS (1)
  1. ADCETRIS [Suspect]
     Active Substance: BRENTUXIMAB VEDOTIN
     Indication: IMMUNOBLASTIC LYMPHOMA
     Dosage: UNK
     Route: 065
     Dates: start: 20181121

REACTIONS (5)
  - Off label use [Unknown]
  - Immunoblastic lymphoma [Unknown]
  - Pyrexia [Unknown]
  - General physical health deterioration [Unknown]
  - Erythema [Unknown]
